FAERS Safety Report 15283840 (Version 1)
Quarter: 2018Q3

REPORT INFORMATION
  Report Type: Spontaneous
  Country: DE (occurrence: DE)
  Receive Date: 20180816
  Receipt Date: 20180816
  Transmission Date: 20181010
  Serious: Yes (Hospitalization)
  Sender: FDA-Public Use
  Company Number: DE-ROCHE-2170908

PATIENT
  Sex: Male
  Weight: 100 kg

DRUGS (2)
  1. METHOTREXAT [Concomitant]
     Active Substance: METHOTREXATE
     Indication: POLYARTHRITIS
     Route: 058
  2. TOCILIZUMAB. [Suspect]
     Active Substance: TOCILIZUMAB
     Indication: POLYARTHRITIS
     Route: 058

REACTIONS (2)
  - Pneumonia [Recovered/Resolved]
  - Infectious pleural effusion [Recovered/Resolved]

NARRATIVE: CASE EVENT DATE: 20180322
